FAERS Safety Report 9558936 (Version 1)
Quarter: 2013Q3

REPORT INFORMATION
  Report Type: Spontaneous
  Country: CA (occurrence: CA)
  Receive Date: 20130927
  Receipt Date: 20130927
  Transmission Date: 20140515
  Serious: Yes (Other)
  Sender: FDA-Public Use
  Company Number: CA-ROCHE-1280397

PATIENT
  Age: 55 Year
  Sex: Female
  Weight: 55 kg

DRUGS (4)
  1. PEGASYS [Suspect]
     Indication: PRODUCT USED FOR UNKNOWN INDICATION
     Dosage: THERAPY DURATION: 134 DAYS
     Route: 058
  2. RIBAVIRIN [Suspect]
     Indication: PRODUCT USED FOR UNKNOWN INDICATION
     Dosage: THERAPY DURATION: 134 DAYS
     Route: 048
  3. TRAZODONE [Concomitant]
     Route: 065
  4. DEMEROL [Concomitant]
     Route: 065

REACTIONS (7)
  - Haemoglobin decreased [Unknown]
  - Intraocular lens implant [Unknown]
  - Platelet count decreased [Unknown]
  - Red blood cell count decreased [Unknown]
  - Retinal haemorrhage [Unknown]
  - Ureteric stenosis [Unknown]
  - Vision blurred [Unknown]
